FAERS Safety Report 8287685-7 (Version None)
Quarter: 2012Q2

REPORT INFORMATION
  Report Type: 
  Country: None (occurrence: None)
  Receive Date: 20120416
  Receipt Date: 20120411
  Transmission Date: 20120825
  Serious: Yes (Death)
  Sender: FDA-Public Use
  Company Number: PHHY2012CA031182

PATIENT
  Sex: Female

DRUGS (1)
  1. AFINITOR [Suspect]
     Indication: THYROID CANCER
     Dosage: 5 MG DAILY
     Route: 048
     Dates: start: 20110427

REACTIONS (1)
  - DEATH [None]
